FAERS Safety Report 8105267-4 (Version None)
Quarter: 2012Q1

REPORT INFORMATION
  Report Type: 
  Country: None (occurrence: None)
  Receive Date: 20120201
  Receipt Date: 20120123
  Transmission Date: 20120608
  Serious: Yes (Other)
  Sender: FDA-Public Use
  Company Number: FR-ABBOTT-12P-056-0896884-00

PATIENT
  Sex: Male

DRUGS (7)
  1. REYATAZ [Suspect]
     Indication: HIV INFECTION
     Route: 048
     Dates: start: 20091221, end: 20110503
  2. EMTRIVA [Suspect]
     Indication: HIV INFECTION
     Route: 048
     Dates: start: 20100706
  3. RALTEGRAVIR [Concomitant]
     Indication: PRODUCT USED FOR UNKNOWN INDICATION
  4. CRESTOR [Concomitant]
     Indication: DYSLIPIDAEMIA
     Route: 048
  5. VIREAD [Suspect]
     Indication: HIV INFECTION
     Route: 048
     Dates: start: 20100706
  6. NORVIR [Suspect]
     Indication: HIV INFECTION
     Route: 048
     Dates: start: 20091221, end: 20110503
  7. ALCASTA [Concomitant]
     Indication: OSTEOPOROSIS
     Route: 042

REACTIONS (4)
  - HYPOPHOSPHATAEMIA [None]
  - HYPERCALCAEMIA [None]
  - CONDITION AGGRAVATED [None]
  - RENAL TUBULAR DISORDER [None]
